FAERS Safety Report 18220572 (Version 3)
Quarter: 2020Q3

REPORT INFORMATION
  Report Type: Spontaneous
  Country: US (occurrence: US)
  Receive Date: 20200902
  Receipt Date: 20200907
  Transmission Date: 20201103
  Serious: Yes (Other)
  Sender: FDA-Public Use
  Company Number: US-SA-2020SA230511

PATIENT

DRUGS (1)
  1. LANTUS SOLOSTAR [Suspect]
     Active Substance: INSULIN GLARGINE
     Indication: DIABETES MELLITUS
     Dosage: 18?24 UNITS, QD (DEPENDING ON HER BLOOD SUGAR READING)
     Route: 065

REACTIONS (6)
  - Product dose omission issue [Unknown]
  - Incorrect dose administered by device [Unknown]
  - Hypertension [Unknown]
  - Blood glucose increased [Unknown]
  - Device issue [Unknown]
  - Blindness unilateral [Unknown]

NARRATIVE: CASE EVENT DATE: 20200824
